FAERS Safety Report 6149359-8 (Version None)
Quarter: 2009Q2

REPORT INFORMATION
  Report Type: 
  Country: None (occurrence: None)
  Receive Date: 20090406
  Receipt Date: 20090406
  Transmission Date: 20091009
  Serious: Yes (Life-Threatening)
  Sender: FDA-Public Use
  Company Number: None

PATIENT
  Age: 57 Year
  Sex: Female
  Weight: 58.0604 kg

DRUGS (1)
  1. LYRICA [Suspect]
     Indication: HERPES ZOSTER OTICUS
     Dosage: 100MG 5 TIMES PER DAY PO
     Route: 048
     Dates: start: 20081015, end: 20090401

REACTIONS (10)
  - ALOPECIA [None]
  - AMNESIA [None]
  - APHASIA [None]
  - ARTHRALGIA [None]
  - CONFUSIONAL STATE [None]
  - DEMENTIA ALZHEIMER'S TYPE [None]
  - FAMILY STRESS [None]
  - IMPAIRED WORK ABILITY [None]
  - LACRIMATION INCREASED [None]
  - SUICIDAL IDEATION [None]
